FAERS Safety Report 23830306 (Version 2)
Quarter: 2024Q2

REPORT INFORMATION
  Report Type: Spontaneous
  Country: BR (occurrence: BR)
  Receive Date: 20240508
  Receipt Date: 20240527
  Transmission Date: 20240716
  Serious: Yes (Death, Hospitalization)
  Sender: FDA-Public Use
  Company Number: BR-Accord-423591

PATIENT
  Age: 80 Year
  Sex: Female
  Weight: 80 kg

DRUGS (13)
  1. PACLITAXEL [Suspect]
     Active Substance: PACLITAXEL
     Indication: Uterine cancer
     Dosage: 269 MG INTRAVENOUSLY IN 500 ML OF SALINE SOLUTION FOR 3 HOURS, CYCLE 3, DAY 1 (C3D1)
     Route: 042
     Dates: start: 20240126, end: 20240126
  2. CARBOPLATIN [Concomitant]
     Active Substance: CARBOPLATIN
     Indication: Uterine cancer
     Dosage: IN 250 ML OF GLUCOSE SOLUTION FOR 1 HOUR
     Route: 042
     Dates: start: 20240126, end: 20240126
  3. DEXAMETHASONE [Concomitant]
     Active Substance: DEXAMETHASONE
     Dosage: PER CYCLE OF CHEMOTHERAPY
     Route: 042
     Dates: start: 20240126, end: 20240126
  4. DIPHENHYDRAMINE [Concomitant]
     Active Substance: DIPHENHYDRAMINE
     Dosage: PER CYCLE OF CHEMOTHERAPY
     Route: 042
     Dates: start: 20240126, end: 20240126
  5. ONDANSETRON [Concomitant]
     Active Substance: ONDANSETRON
     Dosage: PER CYCLE OF CHEMOTHERAPY
     Route: 042
     Dates: start: 20240126, end: 20240126
  6. HYDROCORTISONE [Concomitant]
     Active Substance: HYDROCORTISONE
     Dosage: PER CYCLE OF CHEMOTHERAPY
     Route: 042
     Dates: start: 20240126, end: 20240126
  7. DEXAMETHASONE [Concomitant]
     Active Substance: DEXAMETHASONE
     Route: 048
  8. LOPERAMIDE [Concomitant]
     Active Substance: LOPERAMIDE
     Route: 048
  9. DIPYRONE [Concomitant]
     Active Substance: DIPYRONE
     Route: 048
  10. HYDROCHLOROTHIAZIDE [Concomitant]
     Active Substance: HYDROCHLOROTHIAZIDE
     Route: 048
  11. AMLODIPINE [Concomitant]
     Active Substance: AMLODIPINE BESYLATE
     Route: 048
  12. ATENOLOL [Concomitant]
     Active Substance: ATENOLOL
     Route: 048
  13. LOSARTAN [Concomitant]
     Active Substance: LOSARTAN
     Route: 048

REACTIONS (4)
  - Confusional state [Fatal]
  - Asthenia [Fatal]
  - Off label use [Unknown]
  - Neutropenia [Fatal]

NARRATIVE: CASE EVENT DATE: 20240206
